FAERS Safety Report 9166260 (Version 1)
Quarter: 2013Q1

REPORT INFORMATION
  Report Type: Spontaneous
  Country: US (occurrence: US)
  Receive Date: 20130315
  Receipt Date: 20130315
  Transmission Date: 20140127
  Serious: Yes (Other)
  Sender: FDA-Public Use
  Company Number: US-NAPPMUNDI-USA-2013-0099739

PATIENT
  Sex: Male
  Weight: 77.1 kg

DRUGS (1)
  1. OXYCONTIN TABLETS [Suspect]
     Indication: PAIN
     Dosage: 20 MG, BID
     Route: 048
     Dates: start: 2005

REACTIONS (2)
  - Coronary artery occlusion [Unknown]
  - Pain [Unknown]
